FAERS Safety Report 19880984 (Version 3)
Quarter: 2022Q1

REPORT INFORMATION
  Report Type: Report from Study
  Country: US (occurrence: US)
  Receive Date: 20210924
  Receipt Date: 20220210
  Transmission Date: 20220423
  Serious: No
  Sender: FDA-Public Use
  Company Number: US-NOVARTISTESTPH-NVSC2021US216804

PATIENT
  Sex: Male

DRUGS (1)
  1. ENTRESTO [Suspect]
     Active Substance: SACUBITRIL\VALSARTAN
     Indication: Product used for unknown indication
     Dosage: 0.5 DF (24/26 MG)
     Route: 065

REACTIONS (4)
  - Hypotension [Not Recovered/Not Resolved]
  - Rash macular [Unknown]
  - Stent malfunction [Unknown]
  - Wrong technique in product usage process [Unknown]
